FAERS Safety Report 8853868 (Version 1)
Quarter: 2012Q4

REPORT INFORMATION
  Report Type: 
  Country: US (occurrence: US)
  Receive Date: 20121022
  Receipt Date: 20121022
  Transmission Date: 20130627
  Serious: Yes (Hospitalization)
  Sender: FDA-Public Use
  Company Number: PHEH2012US020494

PATIENT
  Sex: Female

DRUGS (2)
  1. AFINITOR [Suspect]
     Indication: BREAST CANCER
     Dosage: 10 mg, QD
     Route: 048
  2. EXEMESTANE [Concomitant]
     Dosage: 25 mg, UNK

REACTIONS (5)
  - Central nervous system lesion [Unknown]
  - Vision blurred [Unknown]
  - Syncope [Unknown]
  - Diarrhoea [Unknown]
  - Nausea [Unknown]
